FAERS Safety Report 6082549-1 (Version None)
Quarter: 2009Q1

REPORT INFORMATION
  Report Type: 
  Country: None (occurrence: None)
  Receive Date: 20090218
  Receipt Date: 20090206
  Transmission Date: 20090719
  Serious: Yes (Hospitalization, Other)
  Sender: FDA-Public Use
  Company Number: DE-JNJFOC-20090202293

PATIENT
  Age: 17 Year
  Sex: Female
  Weight: 53 kg

DRUGS (3)
  1. REMICADE [Suspect]
     Indication: JUVENILE ARTHRITIS
     Route: 042
  2. INDOMETHACIN [Concomitant]
     Indication: JUVENILE ARTHRITIS
     Route: 048
  3. AZATHIOPRINE [Concomitant]
     Indication: JUVENILE ARTHRITIS
     Route: 048

REACTIONS (2)
  - ERYSIPELAS [None]
  - HYPOKALAEMIA [None]
